FAERS Safety Report 9123129 (Version 1)
Quarter: 2013Q1

REPORT INFORMATION
  Report Type: Spontaneous
  Country: US (occurrence: US)
  Receive Date: 20130115
  Receipt Date: 20130115
  Transmission Date: 20140127
  Serious: Yes (Other)
  Sender: FDA-Public Use
  Company Number: US-009507513-1301USA003494

PATIENT
  Age: 37 Year
  Sex: Female

DRUGS (8)
  1. MONTELUKAST SODIUM [Suspect]
     Indication: ASTHMA
     Dosage: 10 MG, UNKNOWN
     Route: 048
  2. MONTELUKAST SODIUM [Suspect]
     Indication: PRODUCT USED FOR UNKNOWN INDICATION
  3. IPRATROPIUM BROMIDE [Suspect]
     Dosage: UNK
     Route: 055
  4. FLUTICASONE PROPIONATE (+) SALMETEROL XINAFOATE [Suspect]
     Dosage: UNK
     Route: 055
  5. XOLAIR [Suspect]
     Dosage: 300 MG, Q4W
     Route: 058
  6. ALBUTEROL SULFATE [Concomitant]
  7. CITALOPRAM HYDROBROMIDE [Concomitant]
  8. ATROVENT [Concomitant]

REACTIONS (1)
  - Transient ischaemic attack [Unknown]
